FAERS Safety Report 5863984-0 (Version None)
Quarter: 2008Q3

REPORT INFORMATION
  Report Type: 
  Country: None (occurrence: None)
  Receive Date: 20080829
  Receipt Date: 20080821
  Transmission Date: 20090109
  Serious: Yes (Other)
  Sender: FDA-Public Use
  Company Number: US-BAYER-200831697NA

PATIENT
  Sex: Male

DRUGS (1)
  1. LEUKINE [Suspect]
     Indication: DRUG USE FOR UNKNOWN INDICATION
     Dosage: AS USED: 250 ?G  UNIT DOSE: 500 ?G
     Route: 058
     Dates: start: 20080818

REACTIONS (3)
  - HEAD INJURY [None]
  - LOSS OF CONSCIOUSNESS [None]
  - SYNCOPE [None]
